FAERS Safety Report 10401909 (Version 1)
Quarter: 2014Q3

REPORT INFORMATION
  Report Type: Spontaneous
  Country: US (occurrence: None)
  Receive Date: 20140820
  Receipt Date: 20140820
  Transmission Date: 20150326
  Serious: Yes (Death, Hospitalization)
  Sender: FDA-Public Use
  Company Number: None

PATIENT
  Age: 5 Year
  Sex: Female
  Weight: 20.4 kg

DRUGS (2)
  1. ONCASPAR [Suspect]
     Active Substance: PEGASPARGASE
  2. VINCRISTINE SULFATE. [Suspect]
     Active Substance: VINCRISTINE SULFATE

REACTIONS (8)
  - Pancytopenia [None]
  - Respiratory failure [None]
  - Pyrexia [None]
  - Decreased appetite [None]
  - Hypophagia [None]
  - Haemoptysis [None]
  - Respiratory tract infection fungal [None]
  - Zygomycosis [None]

NARRATIVE: CASE EVENT DATE: 20140707
